FAERS Safety Report 15762527 (Version 2)
Quarter: 2020Q3

REPORT INFORMATION
  Report Type: Spontaneous
  Country: FR (occurrence: FR)
  Receive Date: 20181226
  Receipt Date: 20190206
  Transmission Date: 20201105
  Serious: Yes (Life-Threatening)
  Sender: FDA-Public Use
  Company Number: FR-NAPPMUNDI-GBR-2018-0062720

PATIENT
  Age: 33 Year
  Sex: Female

DRUGS (10)
  1. NALADOR?500 [Suspect]
     Active Substance: SULPROSTONE
     Indication: THIRD STAGE POSTPARTUM HAEMORRHAGE
     Dosage: 1 DF, TOTAL
     Route: 042
     Dates: start: 20181128, end: 20181128
  2. OXYNORM [Suspect]
     Active Substance: OXYCODONE HYDROCHLORIDE
     Indication: PAIN
     Dosage: 1 MG, TOTAL
     Route: 040
     Dates: start: 20181128, end: 20181128
  3. FIBRINOGEN HUMAN [Suspect]
     Active Substance: FIBRINOGEN HUMAN
     Indication: THIRD STAGE POSTPARTUM HAEMORRHAGE
     Dosage: 2 G, (TOTAL)
     Route: 042
     Dates: start: 20181128, end: 20181128
  4. KETAMINE [Suspect]
     Active Substance: KETAMINE
     Indication: ANAESTHESIA
     Dosage: 2 MG, TOTAL
     Route: 042
     Dates: start: 20181128, end: 20181128
  5. NIMBEX [Suspect]
     Active Substance: CISATRACURIUM BESYLATE
     Indication: NEUROMUSCULAR BLOCKING THERAPY
     Dosage: 10 MG, TOTAL
     Route: 042
     Dates: start: 20181128, end: 20181128
  6. ACUPAN [Suspect]
     Active Substance: NEFOPAM HYDROCHLORIDE
     Indication: PAIN
     Dosage: 20 MG, TOTAL
     Route: 042
     Dates: start: 20181128, end: 20181128
  7. PROPOFOL. [Suspect]
     Active Substance: PROPOFOL
     Indication: ANAESTHESIA
     Dosage: 300 MG, UNK
     Route: 042
     Dates: start: 20181128, end: 20181128
  8. EXACYL [Suspect]
     Active Substance: TRANEXAMIC ACID
     Indication: THIRD STAGE POSTPARTUM HAEMORRHAGE
     Dosage: 1 G, TOTAL
     Route: 042
     Dates: start: 20181128, end: 20181128
  9. SUFENTANIL [Suspect]
     Active Substance: SUFENTANIL
     Indication: ANAESTHESIA
     Dosage: 27.5 MCG, UNK
     Route: 042
     Dates: start: 20181128, end: 20181128
  10. EPHEDRINE. [Suspect]
     Active Substance: EPHEDRINE
     Indication: PROCEDURAL HYPOTENSION
     Dosage: 12 MG, UNK
     Route: 042
     Dates: start: 20181128, end: 20181128

REACTIONS (2)
  - Acute respiratory distress syndrome [Recovered/Resolved]
  - Cardio-respiratory arrest [Recovered/Resolved]

NARRATIVE: CASE EVENT DATE: 20181128
